FAERS Safety Report 10441489 (Version 2)
Quarter: 2014Q3

REPORT INFORMATION
  Report Type: Spontaneous
  Country: US (occurrence: US)
  Receive Date: 20140909
  Receipt Date: 20140909
  Transmission Date: 20150326
  Serious: No
  Sender: FDA-Public Use
  Company Number: US-ELI_LILLY_AND_COMPANY-US201407007097

PATIENT
  Age: 72 Year
  Sex: Female
  Weight: 52.15 kg

DRUGS (9)
  1. ESCITALOPRAM [Concomitant]
     Active Substance: ESCITALOPRAM OXALATE
  2. CRESTOR [Concomitant]
     Active Substance: ROSUVASTATIN CALCIUM
  3. DEXLANSOPRAZOLE [Concomitant]
     Active Substance: DEXLANSOPRAZOLE
  4. CELEBREX [Concomitant]
     Active Substance: CELECOXIB
  5. FORTEO [Suspect]
     Active Substance: TERIPARATIDE
     Indication: OSTEOPOROSIS
     Dosage: 20 UG, QD
     Route: 058
     Dates: start: 201307, end: 201403
  6. ASA [Concomitant]
     Active Substance: ASPIRIN
  7. OMEGA 3 [Concomitant]
     Active Substance: OMEGA-3 FATTY ACIDS
  8. CALCIUM [Concomitant]
     Active Substance: CALCIUM
  9. NADOLOL. [Concomitant]
     Active Substance: NADOLOL

REACTIONS (2)
  - Oral discomfort [Recovered/Resolved]
  - Bone disorder [Recovering/Resolving]

NARRATIVE: CASE EVENT DATE: 201407
